FAERS Safety Report 7544420-5 (Version None)
Quarter: 2011Q2

REPORT INFORMATION
  Report Type: 
  Country: None (occurrence: None)
  Receive Date: 20110613
  Receipt Date: 20090209
  Transmission Date: 20111010
  Serious: Yes (Death, Other)
  Sender: FDA-Public Use
  Company Number: PHHY2009KR04578

PATIENT
  Sex: Male

DRUGS (1)
  1. SANDOSTATIN LAR [Suspect]
     Indication: HAEMOSTASIS
     Dosage: 0.6 MG, DAILY
     Dates: start: 20040729, end: 20040802

REACTIONS (4)
  - HEPATIC FAILURE [None]
  - HAEMORRHAGE [None]
  - DISEASE PROGRESSION [None]
  - COMA HEPATIC [None]
